FAERS Safety Report 9358960 (Version 7)
Quarter: 2013Q4

REPORT INFORMATION
  Report Type: Spontaneous
  Country: JP (occurrence: JP)
  Receive Date: 20130620
  Receipt Date: 20131114
  Transmission Date: 20140711
  Serious: Yes (Hospitalization, Other)
  Sender: FDA-Public Use
  Company Number: JP-B.I. PHARMACEUTICALS,INC./RIDGEFIELD-2013-BI-17346NB

PATIENT
  Age: 61 Year
  Sex: Female
  Weight: 64.2 kg

DRUGS (13)
  1. MICARDIS [Suspect]
     Indication: HYPERTENSION
     Dosage: 40 MG
     Route: 048
     Dates: start: 20071101
  2. UNKNOWNDRUG [Suspect]
     Indication: RHEUMATOID ARTHRITIS
     Route: 065
     Dates: start: 20120313, end: 20130521
  3. LOXONIN [Suspect]
     Indication: RHEUMATOID ARTHRITIS
     Route: 065
     Dates: start: 20120621
  4. LOXONIN [Suspect]
     Route: 065
     Dates: start: 20120703
  5. PROGRAF [Suspect]
     Indication: RHEUMATOID ARTHRITIS
     Dosage: 3 MG
     Route: 048
     Dates: start: 20130212
  6. BETANIS [Suspect]
     Indication: CYSTITIS
     Dosage: 50 MG
     Route: 048
     Dates: start: 20130326
  7. METGLUCO [Suspect]
     Indication: DIABETES MELLITUS
     Dosage: 500 MG
     Route: 048
     Dates: start: 20120614, end: 20130530
  8. METGLUCO [Suspect]
     Dosage: 1000 MG
     Route: 048
     Dates: start: 20120530, end: 20130613
  9. METGLUCO [Suspect]
     Dosage: 500 MG
     Route: 048
     Dates: start: 20120614, end: 20130613
  10. TRAZENTA [Concomitant]
     Indication: DIABETES MELLITUS
     Dosage: 5 MG
     Route: 048
     Dates: start: 20130502, end: 20130613
  11. TRAZENTA [Concomitant]
     Route: 048
     Dates: start: 20130503
  12. TRAZENTA [Concomitant]
     Route: 048
     Dates: start: 20130730
  13. METHOTREXATE/METHOTREXATE [Concomitant]
     Dosage: 5 MG
     Route: 065
     Dates: end: 20130212

REACTIONS (3)
  - Intraductal proliferative breast lesion [Recovered/Resolved]
  - Diabetes mellitus [Recovered/Resolved]
  - Cystitis [Unknown]
